FAERS Safety Report 14724044 (Version 2)
Quarter: 2018Q2

REPORT INFORMATION
  Report Type: Spontaneous
  Country: ES (occurrence: ES)
  Receive Date: 20180405
  Receipt Date: 20180420
  Transmission Date: 20180711
  Serious: Yes (Death, Hospitalization, Other)
  Sender: FDA-Public Use
  Company Number: ES-SA-2018SA088824

PATIENT
  Age: 78 Year
  Sex: Female

DRUGS (7)
  1. IMIDAPRIL [Concomitant]
     Active Substance: IMIDAPRIL
  2. DRONEDARONE [Suspect]
     Active Substance: DRONEDARONE
     Route: 065
  3. ACENOCOUMAROL [Concomitant]
     Active Substance: ACENOCOUMAROL
  4. LANSOPRAZOLE. [Concomitant]
     Active Substance: LANSOPRAZOLE
  5. BISOPROLOL [Concomitant]
     Active Substance: BISOPROLOL
  6. PRAVASTATIN. [Concomitant]
     Active Substance: PRAVASTATIN
  7. LEVOTHYROXINE. [Concomitant]
     Active Substance: LEVOTHYROXINE

REACTIONS (17)
  - Toxicity to various agents [Fatal]
  - Hepatic encephalopathy [Fatal]
  - Asthenia [Fatal]
  - Chromaturia [Fatal]
  - Blood bilirubin increased [Fatal]
  - Hepatitis [Fatal]
  - Drug-induced liver injury [Fatal]
  - Haematemesis [Fatal]
  - Abdominal pain upper [Fatal]
  - Jaundice [Fatal]
  - Decreased appetite [Fatal]
  - Hepatocellular injury [Fatal]
  - Ascites [Fatal]
  - Transaminases increased [Fatal]
  - Hepatitis cholestatic [Fatal]
  - Acute hepatic failure [Fatal]
  - Hyponatraemia [Fatal]
